FAERS Safety Report 7006205-8 (Version None)
Quarter: 2010Q3

REPORT INFORMATION
  Report Type: 
  Country: None (occurrence: None)
  Receive Date: 20100921
  Receipt Date: 20100913
  Transmission Date: 20110219
  Serious: Yes (Other)
  Sender: FDA-Public Use
  Company Number: US-PFIZER INC-2010115884

PATIENT
  Sex: Male

DRUGS (2)
  1. VIAGRA [Suspect]
     Dosage: 50 MG, SINGLE
  2. TESTOSTERONE [Concomitant]
     Dosage: UNK

REACTIONS (6)
  - ERECTION INCREASED [None]
  - FEELING HOT [None]
  - HEADACHE [None]
  - HEARING IMPAIRED [None]
  - HEART RATE IRREGULAR [None]
  - VISUAL IMPAIRMENT [None]
